FAERS Safety Report 9804746 (Version 3)
Quarter: 2014Q1

REPORT INFORMATION
  Report Type: Spontaneous
  Country: US (occurrence: US)
  Receive Date: 20140108
  Receipt Date: 20140116
  Transmission Date: 20141002
  Serious: Yes (Hospitalization)
  Sender: FDA-Public Use
  Company Number: US-ASTRAZENECA-2014SE00015

PATIENT
  Age: 88 Day
  Sex: Female
  Weight: 2.7 kg

DRUGS (3)
  1. SYNAGIS [Suspect]
     Route: 030
     Dates: start: 20131122
  2. POLYVITAMIN [Concomitant]
  3. IRON [Concomitant]

REACTIONS (1)
  - Rhinovirus infection [Recovered/Resolved]
